FAERS Safety Report 13246296 (Version 1)
Quarter: 2017Q1

REPORT INFORMATION
  Report Type: Spontaneous
  Country: US (occurrence: US)
  Receive Date: 20170217
  Receipt Date: 20170217
  Transmission Date: 20170428
  Serious: No
  Sender: FDA-Public Use
  Company Number: US-TEVA-713722ACC

PATIENT
  Sex: Male

DRUGS (2)
  1. GENERIC CYMBALTA BRECKENRIDGE [Suspect]
     Active Substance: DULOXETINE HYDROCHLORIDE
     Route: 065
  2. CELECOXIB. [Suspect]
     Active Substance: CELECOXIB

REACTIONS (1)
  - Gastrointestinal disorder [Unknown]
